FAERS Safety Report 7829589-7 (Version None)
Quarter: 2011Q4

REPORT INFORMATION
  Report Type: 
  Country: None (occurrence: None)
  Receive Date: 20111020
  Receipt Date: 20111011
  Transmission Date: 20120403
  Serious: Yes (Hospitalization, Other)
  Sender: FDA-Public Use
  Company Number: US-ASTRAZENECA-2011SE22503

PATIENT
  Age: 58 Year
  Sex: Female
  Weight: 98.9 kg

DRUGS (30)
  1. REQUIP [Concomitant]
     Route: 048
  2. FLOMAX [Concomitant]
     Indication: BLADDER DISORDER
  3. SEROQUEL [Suspect]
     Indication: SLEEP DISORDER
     Route: 048
     Dates: start: 19810101, end: 20110425
  4. SEROQUEL [Suspect]
     Route: 048
  5. REQUIP [Concomitant]
     Indication: RESTLESS LEGS SYNDROME
     Route: 048
  6. REQUIP [Concomitant]
     Route: 048
  7. PRAVASTATIN [Concomitant]
     Indication: BLOOD CHOLESTEROL INCREASED
     Route: 048
  8. SINEMET [Concomitant]
     Indication: PARKINSON'S DISEASE
     Route: 048
  9. GABAPENTIN [Concomitant]
     Indication: NEUROPATHY PERIPHERAL
     Route: 048
  10. CITALOPRAM HYDROBROMIDE [Concomitant]
     Indication: DEPRESSION
  11. CARBIDOPA [Concomitant]
     Indication: PARKINSON'S DISEASE
  12. CALCIUM CARBONATE [Concomitant]
  13. PRIMIDONE [Concomitant]
     Indication: PARKINSON'S DISEASE
     Route: 048
  14. LEVOTHYROXINE SODIUM [Concomitant]
     Indication: THYROID DISORDER
     Dosage: 50 MCG QAM
     Route: 048
  15. LEXAPRO [Concomitant]
     Indication: DEPRESSION
     Dosage: 40 MG QAM
     Route: 048
  16. GENERIC VESICAR [Concomitant]
  17. SEROQUEL [Suspect]
     Route: 048
  18. HUMALOG PEN [Concomitant]
     Indication: TYPE 2 DIABETES MELLITUS
     Dosage: TOTAL DAILY DOSE 75 MG, 25 MG BID
     Route: 058
  19. FAMOTIDINE [Concomitant]
     Dosage: 20 MG QAM
     Route: 048
  20. VITAMIN D [Concomitant]
  21. SEROQUEL [Suspect]
     Indication: BIPOLAR DISORDER
     Route: 048
     Dates: start: 19810101, end: 20110425
  22. SEROQUEL [Suspect]
     Route: 048
  23. DEPAKOTE [Concomitant]
     Indication: BIPOLAR DISORDER
     Route: 048
  24. REQUIP [Concomitant]
     Indication: PARKINSON'S DISEASE
     Route: 048
  25. MULTI-VITAMINS [Concomitant]
  26. SEROQUEL [Suspect]
     Route: 048
  27. VESICARE [Concomitant]
     Route: 048
  28. NUERONTIN [Concomitant]
  29. SINEMET [Concomitant]
     Route: 048
  30. TWO OTHER VITAMINS [Concomitant]

REACTIONS (29)
  - RENAL FAILURE [None]
  - PARKINSON'S DISEASE [None]
  - FRACTURED COCCYX [None]
  - SINUSITIS [None]
  - CHOLELITHIASIS [None]
  - DIARRHOEA [None]
  - GOITRE [None]
  - NEUROPATHY PERIPHERAL [None]
  - FUNCTIONAL GASTROINTESTINAL DISORDER [None]
  - DEHYDRATION [None]
  - BLADDER DISORDER [None]
  - SOMNOLENCE [None]
  - OSTEOPOROSIS [None]
  - FATIGUE [None]
  - BLOOD CHOLESTEROL INCREASED [None]
  - DIABETES MELLITUS [None]
  - MUSCULOSKELETAL DISCOMFORT [None]
  - PAIN [None]
  - DIZZINESS [None]
  - DRUG DOSE OMISSION [None]
  - TOXICITY TO VARIOUS AGENTS [None]
  - FALL [None]
  - WEIGHT DECREASED [None]
  - ABASIA [None]
  - INSOMNIA [None]
  - COMA [None]
  - MANIA [None]
  - RESTLESS LEGS SYNDROME [None]
  - ASTHENIA [None]
